FAERS Safety Report 7034308-0 (Version None)
Quarter: 2010Q4

REPORT INFORMATION
  Report Type: 
  Country: None (occurrence: None)
  Receive Date: 20101008
  Receipt Date: 20100927
  Transmission Date: 20110411
  Serious: Yes (Hospitalization, Other)
  Sender: FDA-Public Use
  Company Number: GR-ELI_LILLY_AND_COMPANY-GR201007004616

PATIENT
  Age: 8 Year
  Sex: Male
  Weight: 32 kg

DRUGS (3)
  1. STRATTERA [Suspect]
     Indication: ATTENTION DEFICIT/HYPERACTIVITY DISORDER
     Dosage: UNK UNK, DAILY (1/D)
     Route: 048
     Dates: end: 20100720
  2. HYPNOTICS AND SEDATIVES [Concomitant]
     Indication: ATTENTION DEFICIT/HYPERACTIVITY DISORDER
     Dates: start: 20100721
  3. HUMATE-P [Concomitant]
     Indication: PROPHYLAXIS
     Dosage: 1500 UG, 2/D
     Route: 042
     Dates: end: 20100719

REACTIONS (3)
  - ANTI FACTOR VIII ANTIBODY TEST [None]
  - HAEMARTHROSIS [None]
  - OEDEMA [None]
